FAERS Safety Report 18999744 (Version 1)
Quarter: 2021Q1

REPORT INFORMATION
  Report Type: Spontaneous
  Country: US (occurrence: US)
  Receive Date: 20210311
  Receipt Date: 20210311
  Transmission Date: 20210420
  Serious: No
  Sender: FDA-Public Use
  Company Number: US-MYLANLABS-2021M1013222

PATIENT

DRUGS (3)
  1. VALERIAN ROOT                      /01561601/ [Concomitant]
     Active Substance: VALERIAN
     Dosage: UNK
  2. DIAZEPAM TABLETS USP [Suspect]
     Active Substance: DIAZEPAM
     Indication: ANXIETY
     Dosage: 5 MILLIGRAM, BID
     Dates: start: 20210113
  3. DIAZEPAM. [Concomitant]
     Active Substance: DIAZEPAM
     Dosage: UNK

REACTIONS (10)
  - Hyperhidrosis [Unknown]
  - Exaggerated startle response [Unknown]
  - Myalgia [Unknown]
  - Nightmare [Unknown]
  - Irritability [Unknown]
  - Headache [Unknown]
  - Diarrhoea [Unknown]
  - Palpitations [Unknown]
  - Drug ineffective [Unknown]
  - Fatigue [Unknown]

NARRATIVE: CASE EVENT DATE: 20210113
